FAERS Safety Report 7290174-X (Version None)
Quarter: 2011Q1

REPORT INFORMATION
  Report Type: 
  Country: None (occurrence: None)
  Receive Date: 20110214
  Receipt Date: 20110201
  Transmission Date: 20110831
  Serious: Yes (Other)
  Sender: FDA-Public Use
  Company Number: PHHY2011IE03011

PATIENT
  Age: 56 Year
  Sex: Female

DRUGS (5)
  1. ELTROXIN [Interacting]
     Indication: HYPOTHYROIDISM
     Dosage: 100 UG, QD
  2. ELTROXIN [Interacting]
     Dosage: 125 UG, QD
  3. TEGRETOL [Suspect]
     Indication: EPILEPSY
     Dosage: 600 MG, BID
     Route: 048
  4. SERETIDE [Concomitant]
     Indication: ASTHMA
  5. LIPITOR [Interacting]
     Indication: BLOOD CHOLESTEROL INCREASED
     Dosage: 40 MG, QD

REACTIONS (3)
  - CONFUSIONAL STATE [None]
  - DRUG INTERACTION [None]
  - AMNESIA [None]
